FAERS Safety Report 9676953 (Version 3)
Quarter: 2013Q4

REPORT INFORMATION
  Report Type: Spontaneous
  Country: AT (occurrence: AT)
  Receive Date: 20131108
  Receipt Date: 20131213
  Transmission Date: 20140711
  Serious: Yes (Other)
  Sender: FDA-Public Use
  Company Number: AT-AMGEN-AUTSP2013077856

PATIENT
  Age: 68 Year
  Sex: Female

DRUGS (14)
  1. PROLIA [Suspect]
     Indication: PRODUCT USED FOR UNKNOWN INDICATION
     Dosage: UNK
     Route: 065
  2. PARKEMED [Concomitant]
  3. HYDROMORPHONE [Concomitant]
  4. HYDAL [Concomitant]
  5. RAMIPRIL [Concomitant]
     Indication: BLOOD PRESSURE INCREASED
  6. THROMBO ASS [Concomitant]
  7. PANTOLOC                           /01263204/ [Concomitant]
  8. BETAHISTIN                         /00141802/ [Concomitant]
     Indication: DIZZINESS
  9. PASPERTIN                          /00041902/ [Concomitant]
  10. OLEOVIT                            /00056001/ [Concomitant]
  11. TRITTICO [Concomitant]
  12. MAGNOSOLV [Concomitant]
  13. CALCIUM [Concomitant]
  14. IROCOPHAN [Concomitant]

REACTIONS (13)
  - Activities of daily living impaired [Unknown]
  - Pain [Not Recovered/Not Resolved]
  - General physical health deterioration [Unknown]
  - Fatigue [Unknown]
  - Lacrimation increased [Unknown]
  - Abdominal discomfort [Unknown]
  - Somnolence [Unknown]
  - Drug intolerance [Unknown]
  - Feeling abnormal [Not Recovered/Not Resolved]
  - Nausea [Unknown]
  - Malaise [Unknown]
  - Decreased appetite [Unknown]
  - Asthenia [Unknown]
